FAERS Safety Report 17271022 (Version 8)
Quarter: 2022Q1

REPORT INFORMATION
  Report Type: Report from Study
  Country: US (occurrence: US)
  Receive Date: 20200115
  Receipt Date: 20220315
  Transmission Date: 20220423
  Serious: Yes (Hospitalization, Disabling, Other)
  Sender: FDA-Public Use
  Company Number: US-SA-2019SA127547

PATIENT
  Age: 20 Year
  Sex: Female

DRUGS (7)
  1. ALGLUCOSIDASE ALFA [Suspect]
     Active Substance: ALGLUCOSIDASE ALFA
     Indication: Glycogen storage disease type II
     Dosage: 2300 MG, QOW
     Route: 041
     Dates: start: 20170615
  2. ALGLUCOSIDASE ALFA [Suspect]
     Active Substance: ALGLUCOSIDASE ALFA
     Dosage: 1600 MG, QW
     Route: 042
     Dates: start: 20170828
  3. ALGLUCOSIDASE ALFA [Suspect]
     Active Substance: ALGLUCOSIDASE ALFA
     Dosage: 2300 MG, QOW
     Route: 042
     Dates: start: 20170831
  4. ALGLUCOSIDASE ALFA [Suspect]
     Active Substance: ALGLUCOSIDASE ALFA
     Dosage: 2300 MG, QOW
     Route: 041
     Dates: start: 20190515
  5. ALGLUCOSIDASE ALFA [Suspect]
     Active Substance: ALGLUCOSIDASE ALFA
     Dosage: 1600 MG, QOW
     Route: 042
     Dates: start: 201908
  6. ALGLUCOSIDASE ALFA [Suspect]
     Active Substance: ALGLUCOSIDASE ALFA
     Dosage: 2300 MG, QOW
     Route: 041
     Dates: start: 20190917
  7. ALGLUCOSIDASE ALFA [Suspect]
     Active Substance: ALGLUCOSIDASE ALFA
     Dosage: 1600 MG, QW
     Route: 042
     Dates: start: 2019

REACTIONS (27)
  - Loss of consciousness [Unknown]
  - Asthenia [Unknown]
  - Malaise [Unknown]
  - Pain [Recovering/Resolving]
  - COVID-19 [Recovered/Resolved]
  - Loss of personal independence in daily activities [Recovering/Resolving]
  - Device related infection [Recovering/Resolving]
  - Pyrexia [Recovering/Resolving]
  - Chest discomfort [Recovering/Resolving]
  - Asthenia [Recovering/Resolving]
  - Hypersomnia [Unknown]
  - Fatigue [Recovering/Resolving]
  - Headache [Not Recovered/Not Resolved]
  - Panic attack [Unknown]
  - Procedural complication [Recovering/Resolving]
  - Aspiration pleural cavity [Recovering/Resolving]
  - Drug hypersensitivity [Unknown]
  - Product dose omission issue [Unknown]
  - Incorrect dose administered [Unknown]
  - Inappropriate schedule of product administration [Unknown]
  - Dysphagia [Unknown]
  - Weight decreased [Unknown]
  - Muscular weakness [Unknown]
  - Dyspnoea exertional [Unknown]
  - Ehlers-Danlos syndrome [Unknown]
  - Intentional dose omission [Unknown]
  - Unevaluable event [Unknown]

NARRATIVE: CASE EVENT DATE: 20170828
